FAERS Safety Report 8560821-0 (Version None)
Quarter: 2012Q3

REPORT INFORMATION
  Report Type: 
  Country: None (occurrence: None)
  Receive Date: 20120802
  Receipt Date: 20120723
  Transmission Date: 20120928
  Serious: No
  Sender: FDA-Public Use
  Company Number: US-ASTRAZENECA-2012SE51710

PATIENT
  Age: 59 Year
  Sex: Female

DRUGS (3)
  1. MUCINEX [Concomitant]
  2. PROMETHAZINE W/ CODEINE [Concomitant]
  3. PULMICORT FLEXHALER [Suspect]
     Indication: BRONCHITIS VIRAL
     Route: 055

REACTIONS (2)
  - DRUG INEFFECTIVE [None]
  - OFF LABEL USE [None]
